FAERS Safety Report 5162486-7 (Version None)
Quarter: 2006Q4

REPORT INFORMATION
  Report Type: 
  Country: None (occurrence: None)
  Receive Date: 20061129
  Receipt Date: 20061129
  Transmission Date: 20070319
  Serious: No
  Sender: FDA-Public Use
  Company Number: None

PATIENT
  Age: 72 Year
  Sex: Male
  Weight: 87.9978 kg

DRUGS (2)
  1. SPIRONOLACTONE [Suspect]
     Indication: OEDEMA
     Dosage: 50 MG DAILY PO
     Route: 048
     Dates: start: 20050927, end: 20060623
  2. EPLERENONE [Suspect]
     Indication: OEDEMA
     Dosage: 25 MG DAILY PO
     Route: 048
     Dates: start: 20060623, end: 20060918

REACTIONS (3)
  - BREAST TENDERNESS [None]
  - DIARRHOEA [None]
  - WAIST CIRCUMFERENCE INCREASED [None]
